FAERS Safety Report 6694112-X (Version None)
Quarter: 2010Q2

REPORT INFORMATION
  Report Type: 
  Country: None (occurrence: None)
  Receive Date: 20100421
  Receipt Date: 20100414
  Transmission Date: 20101027
  Serious: Yes (Other)
  Sender: FDA-Public Use
  Company Number: 2010SP016394

PATIENT
  Age: 30 Year
  Sex: Male

DRUGS (1)
  1. NASONEX [Suspect]
     Indication: NASAL POLYPS
     Dosage: 2 DF;HS;NAS
     Route: 045
     Dates: start: 20000101, end: 20090101

REACTIONS (1)
  - CATARACT [None]
